FAERS Safety Report 21010806 (Version 2)
Quarter: 2022Q3

REPORT INFORMATION
  Report Type: Report from Study
  Country: CA (occurrence: CA)
  Receive Date: 20220627
  Receipt Date: 20220722
  Transmission Date: 20221026
  Serious: Yes (Hospitalization)
  Sender: FDA-Public Use
  Company Number: CA-ABBVIE-22K-028-4445815-00

PATIENT
  Age: 61 Year
  Sex: Male
  Weight: 105 kg

DRUGS (26)
  1. SKYRIZI [Suspect]
     Active Substance: RISANKIZUMAB-RZAA
     Indication: Psoriasis
     Route: 058
     Dates: start: 20200429, end: 20200527
  2. SKYRIZI [Suspect]
     Active Substance: RISANKIZUMAB-RZAA
     Route: 058
     Dates: start: 20200528
  3. MELATONIN [Concomitant]
     Active Substance: MELATONIN
     Indication: Insomnia
     Dosage: AT BEDTIME, ONCE A DAY
     Route: 048
     Dates: start: 202007
  4. QUETIAPINE [Concomitant]
     Active Substance: QUETIAPINE
     Indication: Insomnia
     Dosage: AT BEDTIME, ONCE A DAY
     Route: 048
     Dates: start: 202007, end: 20220313
  5. QUETIAPINE [Concomitant]
     Active Substance: QUETIAPINE
     Route: 048
     Dates: start: 20220314
  6. CITALOPRAM [Concomitant]
     Active Substance: CITALOPRAM HYDROBROMIDE
     Indication: Depression
     Route: 048
     Dates: start: 202009
  7. LASIX [Concomitant]
     Active Substance: FUROSEMIDE
     Indication: Product used for unknown indication
  8. FUROSEMIDE [Concomitant]
     Active Substance: FUROSEMIDE
     Indication: Portal hypertension
     Route: 048
     Dates: start: 20191001, end: 20220313
  9. FUROSEMIDE [Concomitant]
     Active Substance: FUROSEMIDE
     Route: 048
     Dates: start: 20220314
  10. SPIRONOLACTONE [Concomitant]
     Active Substance: SPIRONOLACTONE
     Indication: Portal hypertension
     Route: 048
     Dates: start: 20191001, end: 20220313
  11. SPIRONOLACTONE [Concomitant]
     Active Substance: SPIRONOLACTONE
     Route: 048
     Dates: start: 20220314
  12. RIBAVIRIN [Concomitant]
     Active Substance: RIBAVIRIN
     Indication: Hepatic cirrhosis
     Route: 048
     Dates: start: 20200410, end: 202007
  13. RIBAVIRIN [Concomitant]
     Active Substance: RIBAVIRIN
     Indication: Hepatitis C
  14. SOFOSBUVIR [Concomitant]
     Active Substance: SOFOSBUVIR
     Indication: Hepatic cirrhosis
     Route: 048
     Dates: start: 20200410, end: 202007
  15. SOFOSBUVIR [Concomitant]
     Active Substance: SOFOSBUVIR
     Indication: Hepatitis C
  16. ZOPICLONE [Concomitant]
     Active Substance: ZOPICLONE
     Indication: Insomnia
     Dosage: AT BEDTIME, ONCE A DAY
     Route: 048
     Dates: start: 20200416, end: 202007
  17. CEFTRIAXONE [Concomitant]
     Active Substance: CEFTRIAXONE
     Indication: Cellulitis
     Route: 042
     Dates: start: 20211025, end: 20211025
  18. VANCOMYCIN [Concomitant]
     Active Substance: VANCOMYCIN
     Indication: Cellulitis
     Route: 042
     Dates: start: 20211025, end: 20211026
  19. DALTEPARIN [Concomitant]
     Active Substance: DALTEPARIN
     Indication: Cellulitis
     Dates: start: 20211025, end: 20211028
  20. AMOXICILLIN\CLAVULANATE POTASSIUM [Concomitant]
     Active Substance: AMOXICILLIN\CLAVULANATE POTASSIUM
     Indication: Cellulitis
     Dosage: DOSE-125 MG;UNIT-875/125 MG
     Route: 048
     Dates: start: 20211028, end: 20211105
  21. TYLENOL [Concomitant]
     Active Substance: ACETAMINOPHEN
     Indication: Cellulitis
     Dosage: 1-2 TAB 1 IN 6 HOURS/PRN
     Route: 048
     Dates: start: 20211025, end: 20211028
  22. TYLENOL [Concomitant]
     Active Substance: ACETAMINOPHEN
     Indication: Failure to thrive
     Dosage: DOSE :1; UNIT-1-2 TABS, 1 IN 4 HR/PRN
     Route: 048
     Dates: start: 20211104, end: 20211105
  23. HYDROMORPHONE [Concomitant]
     Active Substance: HYDROMORPHONE
     Indication: Cellulitis
     Dosage: 0.5-1.0 MG 1 IN 6 HOUR/ PRN
     Route: 042
     Dates: start: 20211026, end: 20211028
  24. VALIUM [Concomitant]
     Active Substance: DIAZEPAM
     Indication: Failure to thrive
     Dosage: 1 IN 2 HR/PRN
     Route: 048
     Dates: start: 20211104, end: 20211105
  25. APIXABAN [Concomitant]
     Active Substance: APIXABAN
     Indication: Thrombosis prophylaxis
     Route: 048
     Dates: start: 20220314
  26. ROSUVASTATIN [Concomitant]
     Active Substance: ROSUVASTATIN
     Indication: Dyslipidaemia
     Route: 048
     Dates: start: 20220314

REACTIONS (1)
  - Hyponatraemia [Recovered/Resolved]

NARRATIVE: CASE EVENT DATE: 20220515
